FAERS Safety Report 9223820 (Version 1)
Quarter: 2013Q2

REPORT INFORMATION
  Report Type: Spontaneous
  Country: DE (occurrence: DE)
  Receive Date: 20130410
  Receipt Date: 20130410
  Transmission Date: 20140414
  Serious: Yes (Other)
  Sender: FDA-Public Use
  Company Number: DE-UCBSA-037216

PATIENT
  Age: 34 Year
  Sex: Female

DRUGS (3)
  1. VIMPAT [Suspect]
     Indication: EPILEPSY
     Dosage: 100X2
     Dates: start: 20101117
  2. VIMPAT [Suspect]
     Indication: EPILEPSY
     Dosage: 3X100MG
     Dates: start: 2011
  3. CARBAMAZEPIN [Concomitant]

REACTIONS (4)
  - Caesarean section [Unknown]
  - Complication of pregnancy [Unknown]
  - Pregnancy with contraceptive device [Recovered/Resolved]
  - Pregnancy [Recovered/Resolved]
